FAERS Safety Report 7676858-X (Version None)
Quarter: 2011Q3

REPORT INFORMATION
  Report Type: 
  Country: None (occurrence: None)
  Receive Date: 20110811
  Receipt Date: 20110805
  Transmission Date: 20111222
  Serious: Yes (Hospitalization)
  Sender: FDA-Public Use
  Company Number: DE-SANOFI-AVENTIS-2011SA050460

PATIENT
  Sex: Female

DRUGS (3)
  1. ALL OTHER THERAPEUTIC PRODUCTS [Concomitant]
  2. ENOXAPARIN SODIUM [Suspect]
     Indication: PROPHYLAXIS
     Route: 065
     Dates: start: 20110101
  3. ASCORBIC ACID [Interacting]
     Route: 065

REACTIONS (4)
  - DRUG INTERACTION [None]
  - MATERNAL EXPOSURE DURING PREGNANCY [None]
  - HAEMORRHAGIC DIATHESIS [None]
  - GASTROINTESTINAL INFECTION [None]
